FAERS Safety Report 5330280-X (Version None)
Quarter: 2007Q2

REPORT INFORMATION
  Report Type: 
  Country: None (occurrence: None)
  Receive Date: 20070521
  Receipt Date: 20070511
  Transmission Date: 20071010
  Serious: Yes (Hospitalization)
  Sender: FDA-Public Use
  Company Number: GB-ABBOTT-07P-167-0361156-00

PATIENT
  Age: 33 Year
  Sex: Female

DRUGS (8)
  1. VALPROATE SODIUM [Suspect]
     Indication: AFFECTIVE DISORDER
     Route: 065
     Dates: start: 20050803, end: 20060801
  2. ZAPONEX [Suspect]
     Indication: SCHIZOPHRENIA
     Route: 048
     Dates: start: 20050928, end: 20060728
  3. ZAPONEX [Suspect]
     Route: 048
     Dates: start: 20060731
  4. AMISULPRIDE [Concomitant]
     Indication: DRUG USE FOR UNKNOWN INDICATION
     Route: 065
     Dates: start: 20050803
  5. PAROXETINE [Concomitant]
     Indication: DRUG USE FOR UNKNOWN INDICATION
     Route: 065
     Dates: start: 20050803
  6. SENNOSIDE A+B [Concomitant]
     Indication: DRUG USE FOR UNKNOWN INDICATION
     Route: 065
  7. CLOZAPINE [Concomitant]
     Indication: SCHIZOPHRENIA
     Dates: start: 20020516, end: 20050927
  8. HYOSCINE HBR HYT [Concomitant]
     Indication: DRUG USE FOR UNKNOWN INDICATION
     Dates: start: 20050803

REACTIONS (4)
  - IDIOPATHIC THROMBOCYTOPENIC PURPURA [None]
  - SOMNOLENCE [None]
  - TACHYCARDIA [None]
  - THROMBOCYTOPENIA [None]
